FAERS Safety Report 10902853 (Version 2)
Quarter: 2015Q1

REPORT INFORMATION
  Report Type: Report from Study
  Country: US (occurrence: US)
  Receive Date: 20150310
  Receipt Date: 20150324
  Transmission Date: 20150721
  Serious: Yes (Hospitalization, Other)
  Sender: FDA-Public Use
  Company Number: US-EXELIXIS-CABO-14004180

PATIENT
  Sex: Male

DRUGS (13)
  1. D3 [Concomitant]
     Active Substance: 25-HYDROXYCHOLECALCIFEROL, 5-TRANS-
  2. CABOZANTINIB [Suspect]
     Active Substance: CABOZANTINIB
     Dosage: 20 MG, QOD
     Route: 048
     Dates: start: 20140801, end: 2014
  3. CABOZANTINIB [Suspect]
     Active Substance: CABOZANTINIB
     Dosage: 20 MG, QD
     Route: 048
     Dates: start: 20140822, end: 20141008
  4. ASPIRIN. [Concomitant]
     Active Substance: ASPIRIN
  5. CABOZANTINIB [Suspect]
     Active Substance: CABOZANTINIB
     Dosage: 40 MG, QD
     Route: 048
     Dates: start: 2014, end: 2014
  6. CABOZANTINIB [Suspect]
     Active Substance: CABOZANTINIB
     Dosage: 40 MG Q MWF; 20 MG Q T,TH
     Route: 048
     Dates: start: 20150120, end: 20150309
  7. METOPROLOL [Concomitant]
     Active Substance: METOPROLOL
  8. CABOZANTINIB [Suspect]
     Active Substance: CABOZANTINIB
     Indication: BLADDER CANCER
     Dosage: 60 MG, QD
     Route: 048
     Dates: start: 20140320, end: 20140408
  9. CABOZANTINIB [Suspect]
     Active Substance: CABOZANTINIB
     Dosage: 40 MG, QOD
     Route: 048
     Dates: start: 20140801, end: 2014
  10. FOLIC ACID. [Concomitant]
     Active Substance: FOLIC ACID
  11. VITAMIN B12 [Concomitant]
     Active Substance: CYANOCOBALAMIN
  12. ATORVASTATIN [Concomitant]
     Active Substance: ATORVASTATIN
  13. COQ10 [Concomitant]
     Active Substance: UBIDECARENONE

REACTIONS (9)
  - Nausea [Unknown]
  - Urinary tract infection [Unknown]
  - Malaise [Unknown]
  - Chest pain [Unknown]
  - Hypertension [Unknown]
  - Haematochezia [Recovering/Resolving]
  - Off label use [Unknown]
  - Fatigue [Unknown]
  - Dehydration [Unknown]

NARRATIVE: CASE EVENT DATE: 2015
